FAERS Safety Report 7459432-X (Version None)
Quarter: 2011Q2

REPORT INFORMATION
  Report Type: 
  Country: None (occurrence: None)
  Receive Date: 20110505
  Receipt Date: 20110502
  Transmission Date: 20111010
  Serious: Yes (Other)
  Sender: FDA-Public Use
  Company Number: US-BAYER-2011-038061

PATIENT
  Sex: Female

DRUGS (2)
  1. DROSPIRENONE AND ETHINYL ESTRADIOL [Suspect]
     Dosage: UNK
     Route: 048
     Dates: start: 20090201
  2. YASMIN [Suspect]
     Dosage: UNK
     Route: 048
     Dates: start: 20090201

REACTIONS (8)
  - MUSCLE SPASMS [None]
  - ANHEDONIA [None]
  - DYSPNOEA [None]
  - DEEP VEIN THROMBOSIS [None]
  - INJURY [None]
  - PULMONARY EMBOLISM [None]
  - PAIN [None]
  - ANXIETY [None]
